FAERS Safety Report 8778676 (Version 1)
Quarter: 2012Q4

REPORT INFORMATION
  Report Type: 
  Country: US (occurrence: US)
  Receive Date: 20120912
  Receipt Date: 20120912
  Transmission Date: 20130627
  Serious: Yes (Life-Threatening, Hospitalization)
  Sender: FDA-Public Use
  Company Number: US-ROCHE-1117082

PATIENT
  Age: 27 Year
  Sex: Female
  Weight: 84.44 kg

DRUGS (3)
  1. ACTEMRA [Suspect]
     Indication: RHEUMATOID ARTHRITIS
     Route: 042
     Dates: start: 201201, end: 20120711
  2. METHOTREXATE [Concomitant]
  3. PREDNISONE [Concomitant]

REACTIONS (5)
  - Gangrene [Not Recovered/Not Resolved]
  - Gallbladder perforation [Not Recovered/Not Resolved]
  - Acute respiratory distress syndrome [Not Recovered/Not Resolved]
  - Sepsis [Not Recovered/Not Resolved]
  - Histoplasmosis [Not Recovered/Not Resolved]
